FAERS Safety Report 7781485-X (Version None)
Quarter: 2011Q3

REPORT INFORMATION
  Report Type: 
  Country: None (occurrence: None)
  Receive Date: 20110927
  Receipt Date: 20110926
  Transmission Date: 20111222
  Serious: Yes (Hospitalization, Other)
  Sender: FDA-Public Use
  Company Number: JP-BAYER-201036389GPV

PATIENT
  Age: 65 Year
  Sex: Male
  Weight: 51.8 kg

DRUGS (16)
  1. ASPIRIN [Suspect]
  2. CLOPIDOGREL [Interacting]
     Dates: end: 20100418
  3. NICORANDIL [Concomitant]
     Indication: PRODUCT USED FOR UNKNOWN INDICATION
  4. PLACEBO (13194) [Suspect]
     Dosage: DOSAGE FORM: TABLET, 2.5 MG OR 5 MG
     Route: 048
     Dates: start: 20100523, end: 20100529
  5. PLACEBO (13194) [Suspect]
     Dosage: DOSAGE FORM: TABLET, 2.5 MG OR 5 MG
     Route: 048
     Dates: start: 20100424, end: 20100424
  6. ISOSORBIDE MONONITRATE [Concomitant]
     Indication: PRODUCT USED FOR UNKNOWN INDICATION
  7. CLOPIDOGREL [Interacting]
     Indication: ACUTE CORONARY SYNDROME
  8. PLACEBO (13194) [Suspect]
     Indication: ACUTE CORONARY SYNDROME
     Dosage: DOSAGE FORM: TABLET, 2.5 MG OR 5 MG
     Route: 048
     Dates: start: 20100716, end: 20100731
  9. PLACEBO (13194) [Suspect]
     Dosage: DOSAGE FORM: TABLET, 2.5 MG OR 5 MG
     Route: 048
     Dates: start: 20100516, end: 20100522
  10. IMIDAPRIL HYDROCHLORIDE [Concomitant]
     Indication: PRODUCT USED FOR UNKNOWN INDICATION
  11. PLACEBO (13194) [Suspect]
     Dosage: DOSAGE FORM: TABLET, 2.5 MG OR 5 MG
     Route: 048
     Dates: start: 20100530, end: 20100621
  12. HEPARIN SODIUM [Concomitant]
     Indication: PRODUCT USED FOR UNKNOWN INDICATION
  13. PLACEBO (13194) [Suspect]
     Dosage: DOSAGE FORM: TABLET, 2.5 MG OR 5 MG
     Route: 048
     Dates: start: 20100430, end: 20100515
  14. ASPIRIN [Interacting]
     Indication: ACUTE CORONARY SYNDROME
     Dates: end: 20100418
  15. PRAVASTATIN SODIUM [Suspect]
     Indication: PRODUCT USED FOR UNKNOWN INDICATION
  16. TEPRENONE [Concomitant]
     Indication: PRODUCT USED FOR UNKNOWN INDICATION

REACTIONS (1)
  - VASCULAR PSEUDOANEURYSM [None]
